FAERS Safety Report 6518578-0 (Version None)
Quarter: 2009Q4

REPORT INFORMATION
  Report Type: 
  Country: None (occurrence: None)
  Receive Date: 20091228
  Receipt Date: 20091218
  Transmission Date: 20100525
  Serious: Yes (Hospitalization, Other)
  Sender: FDA-Public Use
  Company Number: FR-RB-005155-08

PATIENT
  Age: 23 Year
  Sex: Male
  Weight: 54 kg

DRUGS (2)
  1. SUBUTEX [Suspect]
     Indication: DRUG THERAPY
     Route: 060
  2. SUBUTEX [Suspect]
     Route: 065

REACTIONS (2)
  - CONSTIPATION [None]
  - GASTROINTESTINAL OBSTRUCTION [None]
